FAERS Safety Report 6799954-8 (Version None)
Quarter: 2010Q2

REPORT INFORMATION
  Report Type: 
  Country: None (occurrence: None)
  Receive Date: 20100617
  Receipt Date: 20100610
  Transmission Date: 20101027
  Serious: Yes (Hospitalization)
  Sender: FDA-Public Use
  Company Number: 2010SP021252

PATIENT
  Age: 43 Year
  Sex: Female
  Weight: 33 kg

DRUGS (5)
  1. REMERON [Suspect]
     Indication: DEPRESSION
     Dosage: 15 MG;PO 45 MG;PO 30 MG;PO
     Route: 048
     Dates: start: 20100303, end: 20100311
  2. REMERON [Suspect]
     Indication: DEPRESSION
     Dosage: 15 MG;PO 45 MG;PO 30 MG;PO
     Route: 048
     Dates: start: 20100312, end: 20100329
  3. REMERON [Suspect]
     Indication: DEPRESSION
     Dosage: 15 MG;PO 45 MG;PO 30 MG;PO
     Route: 048
     Dates: start: 20100330, end: 20100401
  4. SEROQUEL [Suspect]
     Indication: INSOMNIA
     Dosage: PO
     Route: 048
     Dates: start: 20100326, end: 20100401
  5. U PAN [Concomitant]

REACTIONS (7)
  - DECREASED APPETITE [None]
  - DRUG INTERACTION [None]
  - DYSURIA [None]
  - HYPERVIGILANCE [None]
  - INSOMNIA [None]
  - MUSCLE TIGHTNESS [None]
  - SEROTONIN SYNDROME [None]
